FAERS Safety Report 9629503 (Version 2)
Quarter: 2013Q4

REPORT INFORMATION
  Report Type: Spontaneous
  Country: US (occurrence: US)
  Receive Date: 20131017
  Receipt Date: 20131126
  Transmission Date: 20140711
  Serious: No
  Sender: FDA-Public Use
  Company Number: US-009507513-1310USA006690

PATIENT
  Age: 53 Year
  Sex: Female
  Weight: 70.3 kg

DRUGS (2)
  1. CLARITIN-D-24 [Suspect]
     Indication: SEASONAL ALLERGY
     Dosage: 10 MG, QD
     Route: 048
     Dates: start: 20130518, end: 20130523
  2. LIPITOR [Concomitant]
     Indication: BLOOD CHOLESTEROL INCREASED
     Dosage: UNK, UNKNOWN

REACTIONS (2)
  - Nasal dryness [Recovered/Resolved]
  - Drug ineffective [Unknown]
